FAERS Safety Report 4791096-6 (Version None)
Quarter: 2005Q4

REPORT INFORMATION
  Report Type: 
  Country: None (occurrence: None)
  Receive Date: 20051005
  Receipt Date: 20050919
  Transmission Date: 20060501
  Serious: No
  Sender: FDA-Public Use
  Company Number: FR_050907173

PATIENT
  Age: 33 Year
  Sex: Female

DRUGS (2)
  1. ZYPREXA [Suspect]
     Dosage: 5 MG DAY
  2. LEVONORGESTREL AND ETHINYL ESTRADIOL [Concomitant]

REACTIONS (2)
  - DRUG INTERACTION [None]
  - MENORRHAGIA [None]
